FAERS Safety Report 4456365-8 (Version None)
Quarter: 2004Q3

REPORT INFORMATION
  Report Type: 
  Country: None (occurrence: None)
  Receive Date: 20040902
  Receipt Date: 20040712
  Transmission Date: 20050211
  Serious: No
  Sender: FDA-Public Use
  Company Number: 200416802BWH

PATIENT
  Age: 75 Year
  Sex: Male
  Weight: 80.7403 kg

DRUGS (8)
  1. LEVITRA [Suspect]
     Indication: ERECTILE DYSFUNCTION
     Dosage: 10 MG, TOTAL DAILY, ORAL; 20 MG, TOTAL DAILY, ORAL
     Route: 048
     Dates: start: 20040328
  2. VIADUR [Concomitant]
  3. COUMADIN [Concomitant]
  4. LANOXIN [Concomitant]
  5. WELLBUTRIN [Concomitant]
  6. REMERON [Concomitant]
  7. ZOLOFT [Concomitant]
  8. CARDURA /IRE/ [Concomitant]

REACTIONS (1)
  - ERECTILE DYSFUNCTION [None]
